FAERS Safety Report 15992842 (Version 2)
Quarter: 2019Q2

REPORT INFORMATION
  Report Type: Spontaneous
  Country: US (occurrence: US)
  Receive Date: 20190221
  Receipt Date: 20190428
  Transmission Date: 20190711
  Serious: Yes (Hospitalization, Other)
  Sender: FDA-Public Use
  Company Number: US-BIOGEN-2005BI000509

PATIENT
  Age: 60 Year
  Sex: Female
  Weight: 57.2 kg

DRUGS (9)
  1. AVONEX [Suspect]
     Active Substance: INTERFERON BETA-1A
     Route: 050
     Dates: start: 20140106, end: 20140208
  2. AVONEX [Suspect]
     Active Substance: INTERFERON BETA-1A
     Route: 050
     Dates: start: 20150513
  3. AVONEX [Suspect]
     Active Substance: INTERFERON BETA-1A
     Route: 050
     Dates: start: 200412, end: 20130729
  4. AVONEX [Suspect]
     Active Substance: INTERFERON BETA-1A
     Route: 050
     Dates: end: 20130812
  5. AVONEX [Suspect]
     Active Substance: INTERFERON BETA-1A
     Route: 050
     Dates: start: 20190212
  6. AVONEX [Suspect]
     Active Substance: INTERFERON BETA-1A
     Route: 050
     Dates: start: 20140210, end: 20140512
  7. AVONEX [Suspect]
     Active Substance: INTERFERON BETA-1A
     Route: 050
     Dates: start: 20140519, end: 20150210
  8. AVONEX [Suspect]
     Active Substance: INTERFERON BETA-1A
     Indication: MULTIPLE SCLEROSIS
     Route: 050
     Dates: start: 1996
  9. AVONEX [Suspect]
     Active Substance: INTERFERON BETA-1A
     Route: 050
     Dates: end: 200411

REACTIONS (13)
  - Diabetes mellitus [Not Recovered/Not Resolved]
  - Muscle tightness [Unknown]
  - Pernicious anaemia [Not Recovered/Not Resolved]
  - Memory impairment [Not Recovered/Not Resolved]
  - Speech disorder [Not Recovered/Not Resolved]
  - Alopecia [Unknown]
  - Influenza like illness [Recovered/Resolved]
  - Rash [Recovered/Resolved]
  - Hepatitis B [Not Recovered/Not Resolved]
  - Cat scratch disease [Not Recovered/Not Resolved]
  - Hepatitis C [Not Recovered/Not Resolved]
  - Generalised tonic-clonic seizure [Recovered/Resolved with Sequelae]
  - Injection site pain [Unknown]

NARRATIVE: CASE EVENT DATE: 1997
